FAERS Safety Report 7265189-8 (Version None)
Quarter: 2011Q1

REPORT INFORMATION
  Report Type: 
  Country: None (occurrence: None)
  Receive Date: 20110131
  Receipt Date: 20101110
  Transmission Date: 20110831
  Serious: Yes (Congenital Anomaly, Other)
  Sender: FDA-Public Use
  Company Number: DE-AMGEN-DEUCT2010005228

PATIENT
  Sex: Female

DRUGS (1)
  1. ETANERCEPT [Suspect]

REACTIONS (3)
  - HEART DISEASE CONGENITAL [None]
  - DRUG EXPOSURE DURING PREGNANCY [None]
  - CONGENITAL MUSCULOSKELETAL ANOMALY [None]
